FAERS Safety Report 4386910-2 (Version None)
Quarter: 2004Q2

REPORT INFORMATION
  Report Type: 
  Country: None (occurrence: None)
  Receive Date: 20040625
  Receipt Date: 20040617
  Transmission Date: 20050107
  Serious: Yes (Death)
  Sender: FDA-Public Use
  Company Number: 2004219710JP

PATIENT
  Age: 31 Year
  Sex: Female

DRUGS (1)
  1. MEDROXYPROGESTERONE ACETATE [Suspect]
     Indication: ENDOMETRIAL HYPERPLASIA
     Dosage: 600 MG, QD

REACTIONS (4)
  - ABDOMINAL PAIN LOWER [None]
  - ENDOMETRIAL CANCER [None]
  - GENITAL HAEMORRHAGE [None]
  - MALIGNANT NEOPLASM PROGRESSION [None]
